FAERS Safety Report 16697644 (Version 2)
Quarter: 2019Q3

REPORT INFORMATION
  Report Type: Spontaneous
  Country: US (occurrence: US)
  Receive Date: 20190813
  Receipt Date: 20190814
  Transmission Date: 20191004
  Serious: No
  Sender: FDA-Public Use
  Company Number: US-BAYER-2019-149823

PATIENT
  Age: 56 Year
  Sex: Male

DRUGS (1)
  1. MIRALAX [Suspect]
     Active Substance: POLYETHYLENE GLYCOL 3350
     Indication: ABDOMINAL DISCOMFORT
     Dosage: 1 DF, HS(FOR 2 NIGHTS)
     Route: 048
     Dates: start: 20190809

REACTIONS (2)
  - Gastrointestinal motility disorder [Unknown]
  - Drug ineffective [Unknown]
